FAERS Safety Report 4370204-5 (Version None)
Quarter: 2004Q2

REPORT INFORMATION
  Report Type: 
  Country: None (occurrence: None)
  Receive Date: 20040603
  Receipt Date: 20040414
  Transmission Date: 20050107
  Serious: No
  Sender: FDA-Public Use
  Company Number: US-BRISTOL-MYERS SQUIBB COMPANY-12559993

PATIENT
  Age: 17 Year
  Sex: Male

DRUGS (1)
  1. ABILIFY [Suspect]
     Indication: PSYCHOTIC DISORDER
     Dosage: 1/2 OF A 5 MG/DAY TAB 30-JAN-04 AND INCREASED TO 5 MG/DAY DATE NOT PROVIDED.
     Route: 048
     Dates: start: 20040130

REACTIONS (1)
  - ECCHYMOSIS [None]
